FAERS Safety Report 18469095 (Version 1)
Quarter: 2020Q4

REPORT INFORMATION
  Report Type: Spontaneous
  Country: KR (occurrence: KR)
  Receive Date: 20201105
  Receipt Date: 20201105
  Transmission Date: 20210114
  Serious: Yes (Hospitalization, Other)
  Sender: FDA-Public Use
  Company Number: KR-SAMSUNG BIOEPIS-SB-2020-26157

PATIENT
  Age: 53 Year
  Sex: Female
  Weight: 50.3 kg

DRUGS (22)
  1. KAMISTAD N [Concomitant]
     Indication: PROPHYLAXIS
     Dosage: OINT
     Route: 065
     Dates: start: 20200727
  2. SODIUM CHLORIDE. [Concomitant]
     Active Substance: SODIUM CHLORIDE
     Indication: PROPHYLAXIS AGAINST DEHYDRATION
     Dosage: ONCE (CONTINUOUSLY)
     Route: 042
     Dates: start: 20200726, end: 20200803
  3. CEFTRIAXONE. [Concomitant]
     Active Substance: CEFTRIAXONE
     Indication: PROPHYLAXIS
     Route: 042
     Dates: start: 20200723, end: 20200807
  4. MAGNESIUM SULFATE. [Concomitant]
     Active Substance: MAGNESIUM SULFATE
     Indication: PROPHYLAXIS
     Dosage: ONCE (CONTINUOUSLY)
     Route: 042
     Dates: start: 20200727, end: 20200728
  5. ALBUMIN [Concomitant]
     Active Substance: ALBUMIN HUMAN
     Indication: PROPHYLAXIS
     Dosage: ONCE (CONTINUOUSLY)
     Route: 042
     Dates: start: 20200723, end: 20200723
  6. AMLODIPINE [Concomitant]
     Active Substance: AMLODIPINE BESYLATE
     Indication: PROPHYLAXIS
     Route: 048
     Dates: start: 20200724, end: 20200805
  7. MAGNESIUM SULFATE. [Concomitant]
     Active Substance: MAGNESIUM SULFATE
     Dosage: ONCE (CONTINUOUSLY)
     Route: 042
     Dates: start: 20200805, end: 20200806
  8. NIFEDIPINE. [Concomitant]
     Active Substance: NIFEDIPINE
     Indication: PROPHYLAXIS
     Route: 048
     Dates: start: 20200722
  9. MAGNESIUM SULFATE. [Concomitant]
     Active Substance: MAGNESIUM SULFATE
     Dosage: ONCE (CONTINUOUSLY)
     Route: 042
     Dates: start: 20200730, end: 20200730
  10. TARGIN PR [Concomitant]
     Indication: PROPHYLAXIS
     Dosage: 10/5 MILLIGRAM
     Route: 048
     Dates: start: 20200722
  11. LOSARTAN POTASSIUM. [Concomitant]
     Active Substance: LOSARTAN POTASSIUM
     Indication: PROPHYLAXIS
     Route: 048
     Dates: start: 20200806
  12. NORMAL SALINE [Concomitant]
     Active Substance: SODIUM CHLORIDE
     Indication: PROPHYLAXIS AGAINST DEHYDRATION
     Dosage: ONCE (CONTINUOUSLY)
     Route: 042
     Dates: start: 20200722, end: 20200723
  13. POTASSIUM PHOSPHATE MONOBASIC [Concomitant]
     Active Substance: POTASSIUM PHOSPHATE, MONOBASIC
     Indication: PROPHYLAXIS
     Dosage: ONCE (CONTINUOUSLY)
     Route: 042
     Dates: start: 20200730, end: 20200730
  14. ESOMEPRAZOLE. [Concomitant]
     Active Substance: ESOMEPRAZOLE MAGNESIUM
     Indication: PROPHYLAXIS
     Route: 048
     Dates: start: 20200723
  15. PRUCALOPRIDE [Concomitant]
     Active Substance: PRUCALOPRIDE
     Indication: PROPHYLAXIS
     Route: 048
     Dates: start: 20200724
  16. SAMFENET [Suspect]
     Active Substance: TRASTUZUMAB
     Indication: METASTATIC GASTRIC CANCER
     Route: 065
     Dates: start: 20200714, end: 20200714
  17. POTASSIUM PHOSPHATE MONOBASIC [Concomitant]
     Active Substance: POTASSIUM PHOSPHATE, MONOBASIC
     Dosage: ONCE (CONTINUOUSLY)
     Route: 042
     Dates: start: 20200805, end: 20200806
  18. LACTULOSE. [Concomitant]
     Active Substance: LACTULOSE
     Indication: PROPHYLAXIS
     Route: 048
     Dates: start: 20200723
  19. MEGESTROL [Concomitant]
     Active Substance: MEGESTROL
     Indication: PROPHYLAXIS
     Route: 048
     Dates: start: 20200722
  20. ALFACALCIDOL [Concomitant]
     Active Substance: ALFACALCIDOL
     Indication: PROPHYLAXIS
     Route: 048
     Dates: start: 20200727
  21. PHAZYME 95 [Concomitant]
     Indication: PROPHYLAXIS
     Dosage: 1 T
     Route: 048
     Dates: start: 20200803, end: 20200803
  22. PETHIDINE HCL [Concomitant]
     Indication: PROPHYLAXIS
     Route: 030
     Dates: start: 20200724, end: 20200724

REACTIONS (5)
  - Blood creatinine increased [Recovered/Resolved]
  - Hyperkalaemia [Unknown]
  - Hypocalcaemia [Unknown]
  - Stent malfunction [Unknown]
  - Ureteric obstruction [Unknown]

NARRATIVE: CASE EVENT DATE: 20200721
